FAERS Safety Report 12670576 (Version 2)
Quarter: 2016Q3

REPORT INFORMATION
  Report Type: Spontaneous
  Country: SK (occurrence: SK)
  Receive Date: 20160822
  Receipt Date: 20160927
  Transmission Date: 20161109
  Serious: Yes (Hospitalization)
  Sender: FDA-Public Use
  Company Number: SK-ROCHE-1815585

PATIENT
  Sex: Female
  Weight: 65 kg

DRUGS (2)
  1. MABTHERA [Suspect]
     Active Substance: RITUXIMAB
     Indication: B-CELL LYMPHOMA
     Route: 042
     Dates: start: 20150713, end: 20160620
  2. BENDAMUSTINE [Concomitant]
     Active Substance: BENDAMUSTINE
     Indication: B-CELL LYMPHOMA
     Route: 065
     Dates: start: 20150713, end: 20151217

REACTIONS (4)
  - Erythema [Recovered/Resolved]
  - Tuberculosis [Unknown]
  - Chills [Recovered/Resolved]
  - Necrosis [Recovering/Resolving]
